FAERS Safety Report 5683441-4 (Version None)
Quarter: 2008Q1

REPORT INFORMATION
  Report Type: 
  Country: None (occurrence: None)
  Receive Date: 20080326
  Receipt Date: 20080313
  Transmission Date: 20080703
  Serious: Yes (Death)
  Sender: FDA-Public Use
  Company Number: JPKYO-S-20080020

PATIENT
  Age: 57 Year
  Sex: Female

DRUGS (8)
  1. NAVELBINE [Suspect]
     Indication: BREAST CANCER RECURRENT
     Dosage: 25 MG/M2 QD IV
     Route: 042
     Dates: start: 20070717, end: 20070724
  2. TAXOTERE [Suspect]
     Indication: BREAST CANCER RECURRENT
     Dosage: 25 MG/M2 QD IV
     Route: 042
     Dates: start: 20061212, end: 20070626
  3. ZOMETA [Concomitant]
  4. LANIRAPID [Concomitant]
  5. ADALAT [Concomitant]
  6. VOLTAREN [Concomitant]
  7. LASIX [Concomitant]
  8. PREDONINE [Concomitant]

REACTIONS (4)
  - DEPRESSED LEVEL OF CONSCIOUSNESS [None]
  - HEPATIC FAILURE [None]
  - HYPERKALAEMIA [None]
  - RENAL FAILURE [None]
